FAERS Safety Report 8581184-0 (Version None)
Quarter: 2012Q3

REPORT INFORMATION
  Report Type: 
  Country: None (occurrence: None)
  Receive Date: 20120809
  Receipt Date: 20120801
  Transmission Date: 20120928
  Serious: Yes (Other)
  Sender: FDA-Public Use
  Company Number: US-BAYER-2012-078796

PATIENT
  Age: 21 Year
  Sex: Female

DRUGS (3)
  1. LEVAQUIN [Concomitant]
     Dosage: UNK
     Dates: start: 20050519
  2. RETIN-A [Concomitant]
     Dosage: UNK
     Dates: start: 20050414
  3. YASMIN [Suspect]

REACTIONS (1)
  - PULMONARY EMBOLISM [None]
